FAERS Safety Report 5709798-3 (Version None)
Quarter: 2008Q2

REPORT INFORMATION
  Report Type: 
  Country: None (occurrence: None)
  Receive Date: 20080418
  Receipt Date: 20080417
  Transmission Date: 20081010
  Serious: Yes (Other)
  Sender: FDA-Public Use
  Company Number: GB-JNJFOC-20080402881

PATIENT
  Age: 32 Year
  Sex: Female

DRUGS (5)
  1. PARACETAMOL [Suspect]
     Indication: LYMPHADENOPATHY
  2. PARACETAMOL [Suspect]
     Indication: PYREXIA
     Dosage: 2000-4000 MG
  3. RIFAMPICIN [Interacting]
     Indication: PYREXIA
  4. DOXYCYCLINE [Concomitant]
  5. CLARITHROMYCIN [Concomitant]

REACTIONS (3)
  - DRUG INTERACTION [None]
  - HEPATIC ENCEPHALOPATHY [None]
  - HEPATIC FAILURE [None]
